FAERS Safety Report 6698358-6 (Version None)
Quarter: 2010Q2

REPORT INFORMATION
  Report Type: 
  Country: None (occurrence: None)
  Receive Date: 20100426
  Receipt Date: 20100426
  Transmission Date: 20101027
  Serious: No
  Sender: FDA-Public Use
  Company Number: None

PATIENT
  Age: 65 Year
  Sex: Male
  Weight: 99.56 kg

DRUGS (1)
  1. TERAZOSIN HCL [Suspect]
     Indication: HYPERTENSION
     Dosage: 10 MG HS PO
     Route: 048
     Dates: start: 20091216, end: 20100316

REACTIONS (5)
  - AGITATION [None]
  - BLINDNESS [None]
  - HEADACHE [None]
  - PAINFUL ERECTION [None]
  - SUICIDAL IDEATION [None]
